FAERS Safety Report 4364405-X (Version None)
Quarter: 2004Q2

REPORT INFORMATION
  Report Type: 
  Country: None (occurrence: None)
  Receive Date: 20040513
  Receipt Date: 20040322
  Transmission Date: 20050107
  Serious: Yes (Hospitalization)
  Sender: FDA-Public Use
  Company Number: 2004202358US

PATIENT
  Sex: Male

DRUGS (2)
  1. XANAX XR [Suspect]
     Indication: PANIC ATTACK
     Dosage: 1-2MG IN THE MORNING
  2. ZYPREXA [Concomitant]

REACTIONS (3)
  - EUPHORIC MOOD [None]
  - INTENTIONAL MISUSE [None]
  - PANIC ATTACK [None]
